FAERS Safety Report 15403502 (Version 4)
Quarter: 2019Q3

REPORT INFORMATION
  Report Type: Spontaneous
  Country: US (occurrence: US)
  Receive Date: 20180919
  Receipt Date: 20190808
  Transmission Date: 20191004
  Serious: No
  Sender: FDA-Public Use
  Company Number: US-PFIZER INC-2018375213

PATIENT
  Age: 64 Year
  Sex: Male
  Weight: 159 kg

DRUGS (20)
  1. METFORMIN [Concomitant]
     Active Substance: METFORMIN HYDROCHLORIDE
     Indication: DIABETES MELLITUS
     Dosage: 1000 MG, 2X/DAY
     Dates: start: 2002
  2. CARVEDILOL. [Concomitant]
     Active Substance: CARVEDILOL
     Dosage: 25 MG, 2X/DAY
     Dates: start: 2002
  3. SPIRONOLACTONE. [Concomitant]
     Active Substance: SPIRONOLACTONE
     Indication: MICTURITION DISORDER
     Dosage: 50 MG, DAILY
     Dates: start: 2012
  4. LYRICA [Suspect]
     Active Substance: PREGABALIN
     Indication: NEUROPATHY PERIPHERAL
     Dosage: 75 MG, 2X/DAY
     Route: 048
     Dates: start: 20180912
  5. NOVOLOG [Concomitant]
     Active Substance: INSULIN ASPART
     Indication: DIABETES MELLITUS
     Dosage: 150 IU, DAILY (60 UNITS IN THE MORNING, 60 UNITS IN THE AFTERNOON, 30 UNITS IN THE EVENING PER SLID)
     Dates: start: 2003
  6. GABAPENTIN. [Concomitant]
     Active Substance: GABAPENTIN
     Indication: NEUROPATHY PERIPHERAL
     Dosage: 800 MG, 4X/DAY
     Dates: end: 20180912
  7. POTASSIUM [Concomitant]
     Active Substance: POTASSIUM
     Indication: CARDIAC DISORDER
     Dosage: 10 MG, UNK
     Dates: start: 2002
  8. ATORVASTATIN [Concomitant]
     Active Substance: ATORVASTATIN
     Dosage: 40 MG, DAILY
     Dates: start: 2002
  9. ALBUTEROL. [Concomitant]
     Active Substance: ALBUTEROL
     Indication: DYSPNOEA
     Dosage: UNK, (2 PUFFS AS NEEDED)
  10. ANORO ELLIPTA [Concomitant]
     Active Substance: UMECLIDINIUM BROMIDE\VILANTEROL TRIFENATATE
     Indication: DYSPNOEA
     Dosage: UNK, AS NEEDED, (1 INHALATION IN THE MORNING)
     Dates: start: 2018
  11. CLOBETASOL PROPIONATE. [Concomitant]
     Active Substance: CLOBETASOL PROPIONATE
     Indication: PSORIASIS
     Dosage: 0.5 %, UNK
     Dates: start: 2017
  12. CLOPIDOGREL [Concomitant]
     Active Substance: CLOPIDOGREL BISULFATE
     Indication: ANTICOAGULANT THERAPY
     Dosage: 75 MG, DAILY
     Dates: start: 2012
  13. LYRICA [Suspect]
     Active Substance: PREGABALIN
     Indication: TYPE 2 DIABETES MELLITUS
     Dosage: 100 MG, 3X/DAY
     Route: 048
  14. LYRICA [Suspect]
     Active Substance: PREGABALIN
     Indication: HYPERGLYCAEMIA
  15. OMEGA 3 [Concomitant]
     Active Substance: OMEGA-3 FATTY ACIDS
     Dosage: 2 G, 2X/DAY
     Dates: start: 2002
  16. FUROSEMIDE. [Concomitant]
     Active Substance: FUROSEMIDE
     Indication: FLUID RETENTION
     Dosage: 40 MG, 2X/DAY
     Dates: start: 2002
  17. DICYCLOMINE [Concomitant]
     Active Substance: DICYCLOMINE HYDROCHLORIDE
     Indication: ABDOMINAL PAIN UPPER
     Dosage: 10 MG, AS NEEDED
     Dates: start: 2018
  18. MELATONIN [Concomitant]
     Active Substance: MELATONIN
     Indication: SLEEP DISORDER
     Dosage: 5 MG, AS NEEDED (TAKES HALF TO FULL TABLET)
     Route: 048
     Dates: start: 2018
  19. LOSARTAN. [Concomitant]
     Active Substance: LOSARTAN
     Dosage: 50 MG, DAILY
     Dates: start: 2002
  20. DIGOXIN. [Concomitant]
     Active Substance: DIGOXIN
     Indication: CARDIAC DISORDER
     Dosage: 25 UG, DAILY
     Dates: start: 2002

REACTIONS (3)
  - Pain [Recovered/Resolved]
  - Insomnia [Recovered/Resolved]
  - Somnolence [Recovered/Resolved]

NARRATIVE: CASE EVENT DATE: 20180912
